FAERS Safety Report 10023738 (Version 1)
Quarter: 2014Q1

REPORT INFORMATION
  Report Type: Spontaneous
  Country: US (occurrence: None)
  Receive Date: 20140113
  Receipt Date: 20140113
  Transmission Date: 20141002
  Serious: Yes (Other)
  Sender: FDA-Public Use
  Company Number: 140004-1

PATIENT
  Age: 58 Year
  Sex: Male

DRUGS (1)
  1. SUPREP BOWEL PREP KIT [Suspect]
     Indication: COLONOSCOPY
     Dosage: 2 X 6 OZ. BOTTLE
     Route: 048
     Dates: start: 20131229, end: 20131230

REACTIONS (4)
  - Abdominal pain [None]
  - Muscle spasms [None]
  - Dysuria [None]
  - Bladder pain [None]
